FAERS Safety Report 12674969 (Version 3)
Quarter: 2016Q4

REPORT INFORMATION
  Report Type: Report from Study
  Country: PL (occurrence: PL)
  Receive Date: 20160822
  Receipt Date: 20161219
  Transmission Date: 20170207
  Serious: Yes (Death, Life-Threatening, Hospitalization)
  Sender: FDA-Public Use
  Company Number: PL-UCBSA-2016031985

PATIENT
  Age: 57 Year
  Sex: Male
  Weight: 118 kg

DRUGS (11)
  1. BLINDED BIMEKIZUMAB [Suspect]
     Active Substance: BIMEKIZUMAB
     Dosage: 120 MG, EV 2 WEEKS(QOW)
     Route: 042
     Dates: start: 20160322, end: 20160517
  2. BLINDED BIMEKIZUMAB [Suspect]
     Active Substance: BIMEKIZUMAB
     Indication: RHEUMATOID ARTHRITIS
     Dosage: 240 MG, EV 2 WEEKS(QOW)
     Route: 042
     Dates: start: 20160308, end: 20160308
  3. BLINDED PLACEBO [Suspect]
     Active Substance: INVESTIGATIONAL PRODUCT
     Dosage: 120 MG, EV 2 WEEKS(QOW)
     Route: 042
     Dates: start: 20160322, end: 20160517
  4. METYPRED [Concomitant]
     Active Substance: METHYLPREDNISOLONE
     Indication: RHEUMATOID ARTHRITIS
     Dosage: 4 MG, ONCE DAILY (QD)
     Route: 048
     Dates: start: 20151127
  5. DICLOFENAC SODIUM. [Concomitant]
     Active Substance: DICLOFENAC SODIUM
     Indication: RHEUMATOID ARTHRITIS
     Dosage: 75 MG, 2X/DAY (BID)
     Route: 048
     Dates: start: 20151127
  6. ACIDUM FOLICUM [Concomitant]
     Active Substance: FOLIC ACID
     Indication: DRUG TOXICITY PROPHYLAXIS
     Dosage: 5 MG, QS
     Route: 048
     Dates: start: 20140605
  7. CERTOLIZUMAB PEGOL [Suspect]
     Active Substance: CERTOLIZUMAB PEGOL
     Indication: RHEUMATOID ARTHRITIS
     Dosage: 200 MG, EV 2 WEEKS(QOW)
     Route: 058
     Dates: start: 20160112, end: 20160816
  8. BLINDED PLACEBO [Suspect]
     Active Substance: INVESTIGATIONAL PRODUCT
     Indication: RHEUMATOID ARTHRITIS
     Dosage: 240 MG, EV 2 WEEKS(QOW)
     Route: 042
     Dates: start: 20160308, end: 20160308
  9. METHOTREXATE. [Concomitant]
     Active Substance: METHOTREXATE
     Indication: RHEUMATOID ARTHRITIS
     Dosage: 25 MG, QS
     Route: 048
     Dates: start: 20140605
  10. FUROSEMID [Concomitant]
     Active Substance: FUROSEMIDE
     Indication: OEDEMA
     Dosage: 40 MG, 2X/DAY (BID)
     Route: 048
     Dates: start: 20151127
  11. SPIRONOL [Concomitant]
     Active Substance: SPIRONOLACTONE
     Indication: OEDEMA
     Dosage: 25 MG, 2X/DAY (BID)
     Route: 048
     Dates: start: 20151127

REACTIONS (1)
  - Meningitis [Fatal]

NARRATIVE: CASE EVENT DATE: 20160814
